FAERS Safety Report 5644025-7 (Version None)
Quarter: 2008Q1

REPORT INFORMATION
  Report Type: 
  Country: None (occurrence: None)
  Receive Date: 20080131
  Receipt Date: 20071115
  Transmission Date: 20080703
  Serious: Yes (Hospitalization)
  Sender: FDA-Public Use
  Company Number: 163-21880-07110980

PATIENT
  Age: 71 Year
  Sex: Female
  Weight: 86.1834 kg

DRUGS (9)
  1. REVLIMID [Suspect]
     Indication: MULTIPLE MYELOMA
     Dosage: 10 MG, AS DIRECTED  BY PHYSICIAN, ORAL
     Route: 048
     Dates: start: 20070926
  2. DEXAMETHASONE TAB [Concomitant]
  3. ZOMETA [Concomitant]
  4. THYROID PILL (THYROID THERAPY) [Concomitant]
  5. PREVACID [Concomitant]
  6. POTASSIUM (POTASSIUM) [Concomitant]
  7. VITAMIN B12 [Concomitant]
  8. MULTI-VITAMINS [Concomitant]
  9. ANTIHYPERTENSIVE (ANTIHYPERTENSIVE) [Concomitant]

REACTIONS (1)
  - THROMBOSIS [None]
